FAERS Safety Report 4915791-0 (Version None)
Quarter: 2006Q1

REPORT INFORMATION
  Report Type: 
  Country: None (occurrence: None)
  Receive Date: 20060113
  Receipt Date: 20051003
  Transmission Date: 20060701
  Serious: No
  Sender: FDA-Public Use
  Company Number: 2005SP003321

PATIENT
  Age: 83 Year
  Sex: Female
  Weight: 53.5244 kg

DRUGS (6)
  1. LUNESTA [Suspect]
     Indication: INSOMNIA
     Dosage: 3 MG;HS;ORAL
     Route: 048
     Dates: start: 20050901
  2. ATORVASTATIN CALCIUM [Concomitant]
  3. VASOTEC RPD [Concomitant]
  4. LOPRESSOR [Concomitant]
  5. VITAMIN B-12 [Concomitant]
  6. FOSAMAX [Concomitant]

REACTIONS (2)
  - DRUG INEFFECTIVE [None]
  - INSOMNIA [None]
